FAERS Safety Report 6980421-3 (Version None)
Quarter: 2010Q3

REPORT INFORMATION
  Report Type: 
  Country: None (occurrence: None)
  Receive Date: 20100914
  Receipt Date: 20100222
  Transmission Date: 20110219
  Serious: Yes (Other)
  Sender: FDA-Public Use
  Company Number: US-ABBOTT-10P-163-0628183-00

PATIENT
  Sex: Female

DRUGS (2)
  1. DEPAKOTE [Suspect]
     Indication: CONVULSION
     Dosage: UNKNOWN, GIVEN THROUGH A G-TUBE
     Route: 050
  2. DEPAKENE [Suspect]
     Indication: CONVULSION
     Dosage: UNKNOWN, GIVEN THROUGH A G-TUBE
     Route: 050

REACTIONS (1)
  - CONVULSION [None]
